FAERS Safety Report 13995464 (Version 1)
Quarter: 2017Q3

REPORT INFORMATION
  Report Type: Spontaneous
  Country: US (occurrence: US)
  Receive Date: 20170921
  Receipt Date: 20170921
  Transmission Date: 20171128
  Serious: Yes (Hospitalization)
  Sender: FDA-Public Use
  Company Number: US-AMGEN-USASP2017140380

PATIENT
  Age: 43 Year
  Sex: Female

DRUGS (2)
  1. PROCRIT [Suspect]
     Active Substance: ERYTHROPOIETIN
     Indication: ANAEMIA
     Dosage: UNK
     Route: 065
  2. FERRIC GLUCONATE TRIHYDRATE [Concomitant]
     Dosage: 125 MG, QD
     Route: 042

REACTIONS (2)
  - Reticulocytosis [Unknown]
  - Off label use [Unknown]
